FAERS Safety Report 10137077 (Version 1)
Quarter: 2014Q2

REPORT INFORMATION
  Report Type: Spontaneous
  Country: CN (occurrence: None)
  Receive Date: 20140425
  Receipt Date: 20140425
  Transmission Date: 20141212
  Serious: Yes (Other)
  Sender: FDA-Public Use
  Company Number: CN-ALKEM-000566

PATIENT
  Age: 16 Year
  Sex: Male

DRUGS (1)
  1. QUETIAPINE [Suspect]
     Indication: BIPOLAR I DISORDER

REACTIONS (1)
  - Tic [None]
